FAERS Safety Report 6815039-6 (Version None)
Quarter: 2010Q2

REPORT INFORMATION
  Report Type: 
  Country: None (occurrence: None)
  Receive Date: 20100630
  Receipt Date: 20100630
  Transmission Date: 20101027
  Serious: Yes (Hospitalization)
  Sender: FDA-Public Use
  Company Number: None

PATIENT
  Age: 60 Year
  Sex: Male

DRUGS (2)
  1. SULFAMETHOXAZOLE AND TRIMETHOPRIM [Suspect]
     Indication: PNEUMOCYSTIS JIROVECI PNEUMONIA
     Dosage: 2 TAB EVERY DAY PO
     Route: 048
     Dates: start: 20100303, end: 20100623
  2. SULFAMETHOXAZOLE AND TRIMETHOPRIM [Suspect]
     Indication: PROPHYLAXIS
     Dosage: 2 TAB EVERY DAY PO
     Route: 048
     Dates: start: 20100303, end: 20100623

REACTIONS (2)
  - METABOLIC ACIDOSIS [None]
  - RENAL TUBULAR NECROSIS [None]
